FAERS Safety Report 16332089 (Version 1)
Quarter: 2019Q2

REPORT INFORMATION
  Report Type: Spontaneous
  Country: US (occurrence: US)
  Receive Date: 20190412
  Receipt Date: 20190412
  Transmission Date: 20190711
  Serious: Yes (Hospitalization)
  Sender: FDA-Public Use
  Company Number: None

PATIENT
  Age: 71 Year
  Sex: Male
  Weight: 83 kg

DRUGS (1)
  1. INTRON A [Suspect]
     Active Substance: INTERFERON ALFA-2B
     Dates: end: 20150216

REACTIONS (4)
  - Dizziness [None]
  - Loss of consciousness [None]
  - Generalised tonic-clonic seizure [None]
  - Fall [None]

NARRATIVE: CASE EVENT DATE: 20150228
